FAERS Safety Report 6735020-5 (Version None)
Quarter: 2010Q2

REPORT INFORMATION
  Report Type: 
  Country: None (occurrence: None)
  Receive Date: 20100521
  Receipt Date: 20100430
  Transmission Date: 20101027
  Serious: Yes (Hospitalization, Other)
  Sender: FDA-Public Use
  Company Number: US-BAYER-200930286NA

PATIENT
  Age: 31 Year
  Sex: Female
  Weight: 116 kg

DRUGS (6)
  1. YAZ [Suspect]
     Indication: DRUG USE FOR UNKNOWN INDICATION
     Route: 048
     Dates: start: 20071214, end: 20080721
  2. YAZ [Suspect]
     Route: 048
     Dates: start: 20070101
  3. YASMIN [Suspect]
     Indication: DRUG USE FOR UNKNOWN INDICATION
     Route: 048
     Dates: start: 20070101
  4. YASMIN [Suspect]
     Route: 048
     Dates: start: 20071214, end: 20080721
  5. TYLENOL [Concomitant]
     Indication: HEADACHE
     Route: 065
  6. GENERIC ALLERGY PILL NOS [Concomitant]
     Indication: DRUG USE FOR UNKNOWN INDICATION

REACTIONS (7)
  - CHEST PAIN [None]
  - INJURY [None]
  - PAIN [None]
  - PNEUMONIA [None]
  - PULMONARY EMBOLISM [None]
  - PULMONARY INFARCTION [None]
  - PULMONARY THROMBOSIS [None]
